FAERS Safety Report 7903306-4 (Version None)
Quarter: 2011Q4

REPORT INFORMATION
  Report Type: 
  Country: None (occurrence: None)
  Receive Date: 20111108
  Receipt Date: 20111108
  Transmission Date: 20120403
  Serious: Yes (Hospitalization)
  Sender: FDA-Public Use
  Company Number: None

PATIENT
  Sex: Female
  Weight: 70 kg

DRUGS (2)
  1. SANDOSTATIN [Suspect]
     Dosage: 20 MG
     Dates: end: 20111026
  2. INTRON A [Suspect]
     Dosage: 15 MILLION IU
     Dates: end: 20111031

REACTIONS (3)
  - FATIGUE [None]
  - HEADACHE [None]
  - SMALL INTESTINAL OBSTRUCTION [None]
